FAERS Safety Report 9738445 (Version 2)
Quarter: 2013Q4

REPORT INFORMATION
  Report Type: Spontaneous
  Country: BA (occurrence: BA)
  Receive Date: 20131208
  Receipt Date: 20131226
  Transmission Date: 20140711
  Serious: Yes (Death)
  Sender: FDA-Public Use
  Company Number: BA-ROCHE-1315933

PATIENT
  Age: 59 Year
  Sex: Female
  Weight: 62 kg

DRUGS (5)
  1. HERCEPTIN [Suspect]
     Indication: BREAST CANCER METASTATIC
     Route: 042
     Dates: start: 20131105, end: 20131105
  2. NEBILET [Concomitant]
     Indication: HYPERTENSION
     Route: 048
     Dates: start: 2006
  3. BROMAZEPAM [Concomitant]
     Indication: ANXIETY
     Dosage: USAGE PER NEED
     Route: 048
     Dates: start: 2007
  4. TRAMAL [Concomitant]
     Indication: PAIN
     Route: 048
     Dates: start: 20130614, end: 20131104
  5. FEMARA [Concomitant]
     Route: 065
     Dates: start: 20100409, end: 20130509

REACTIONS (1)
  - Cardiac arrest [Fatal]
